FAERS Safety Report 9723009 (Version 1)
Quarter: 2013Q4

REPORT INFORMATION
  Report Type: Spontaneous
  Country: US (occurrence: None)
  Receive Date: 20131127
  Receipt Date: 20131127
  Transmission Date: 20140711
  Serious: Yes (Other)
  Sender: FDA-Public Use
  Company Number: None

PATIENT
  Age: 48 Year
  Sex: Female
  Weight: 85.1 kg

DRUGS (8)
  1. DOCETAXEL [Suspect]
     Dates: start: 20131126, end: 20131126
  2. DOCETAXEL [Suspect]
     Dates: start: 20131126, end: 20131126
  3. NACL [Concomitant]
  4. EMEND [Concomitant]
  5. TAXOTERE [Concomitant]
  6. BENADRYL [Concomitant]
  7. DECADRON [Concomitant]
  8. CYTOXAN [Concomitant]

REACTIONS (8)
  - Chest discomfort [None]
  - Back pain [None]
  - Dyspnoea [None]
  - Erythema [None]
  - Erythema [None]
  - Infusion related reaction [None]
  - Blood pressure increased [None]
  - Heart rate increased [None]
